FAERS Safety Report 25163018 (Version 1)
Quarter: 2025Q2

REPORT INFORMATION
  Report Type: Report from Study
  Country: US (occurrence: US)
  Receive Date: 20250404
  Receipt Date: 20250404
  Transmission Date: 20250716
  Serious: Yes (Hospitalization)
  Sender: ROCHE
  Company Number: US-ROCHE-10000248244

PATIENT
  Age: 57 Year
  Sex: Male

DRUGS (2)
  1. ACTEMRA [Suspect]
     Active Substance: TOCILIZUMAB
     Indication: Neuromyelitis optica spectrum disorder
     Dosage: INJECT THE CONTENTS OF ONE DEVICE UNDER THE SKIN ONCE WEEKLY (EVERY 7DAYS)
     Route: 058
  2. ACTEMRA [Suspect]
     Active Substance: TOCILIZUMAB

REACTIONS (2)
  - COVID-19 [Unknown]
  - Off label use [Unknown]
